FAERS Safety Report 7175995-6 (Version None)
Quarter: 2010Q4

REPORT INFORMATION
  Report Type: 
  Country: None (occurrence: None)
  Receive Date: 20101220
  Receipt Date: 20101208
  Transmission Date: 20110411
  Serious: No
  Sender: FDA-Public Use
  Company Number: US-BIOGENIDEC-2010BI015701

PATIENT
  Age: 25 Year
  Sex: Female

DRUGS (1)
  1. TYSABRI [Suspect]
     Indication: MULTIPLE SCLEROSIS
     Route: 042
     Dates: start: 20071205

REACTIONS (15)
  - CRYING [None]
  - DEPRESSION [None]
  - DYSPHONIA [None]
  - FATIGUE [None]
  - FEELING ABNORMAL [None]
  - FUNGAL INFECTION [None]
  - GAIT DISTURBANCE [None]
  - HEMIPARESIS [None]
  - MALAISE [None]
  - MULTIPLE SCLEROSIS RELAPSE [None]
  - NASOPHARYNGITIS [None]
  - ORAL CANDIDIASIS [None]
  - SKIN PAPILLOMA [None]
  - TEMPERATURE INTOLERANCE [None]
  - VULVOVAGINAL MYCOTIC INFECTION [None]
